FAERS Safety Report 7460867-X (Version None)
Quarter: 2011Q2

REPORT INFORMATION
  Report Type: 
  Country: None (occurrence: None)
  Receive Date: 20110505
  Receipt Date: 20110203
  Transmission Date: 20111010
  Serious: Yes (Death, Life-Threatening, Hospitalization, Other)
  Sender: FDA-Public Use
  Company Number: US-AMGEN-KDC440300

PATIENT
  Age: 69 Year
  Sex: Male

DRUGS (15)
  1. ATROVENT [Concomitant]
     Dosage: UNK, PRN
  2. LEFLUNOMIDE [Concomitant]
     Dosage: 40 MG, QD
  3. SIROLIMUS [Concomitant]
  4. NORVASC [Concomitant]
     Dosage: 5 MG, QD
  5. CEFPODOXIME PROXETIL [Concomitant]
     Dosage: 200 MG, BID
  6. ZANTAC                             /00550801/ [Concomitant]
     Dosage: 150 MG, BID
  7. METHYLPREDNISOLONE [Concomitant]
     Dosage: 64 MG, QD
  8. STEROID ANTIBACTERIALS [Concomitant]
  9. ACICLOVIR [Concomitant]
     Dosage: 800 MG, QD
  10. MAGNESIUM [Concomitant]
     Route: 042
  11. ETANERCEPT [Suspect]
     Indication: GRAFT VERSUS HOST DISEASE
     Dosage: 25 MG, 2 TIMES/WK
     Route: 058
     Dates: start: 20100618, end: 20100810
  12. CYCLOSPORINE [Concomitant]
  13. URSODIOL [Concomitant]
     Dosage: 300 MG, BID
  14. VITAMIN E                          /00110501/ [Concomitant]
  15. DIOVAN [Concomitant]
     Dosage: 160 MG, QD

REACTIONS (2)
  - CYSTITIS HAEMORRHAGIC [None]
  - PNEUMONIA [None]
